FAERS Safety Report 14170599 (Version 3)
Quarter: 2017Q4

REPORT INFORMATION
  Report Type: Spontaneous
  Country: JP (occurrence: JP)
  Receive Date: 20171108
  Receipt Date: 20171127
  Transmission Date: 20180321
  Serious: Yes (Life-Threatening, Other)
  Sender: FDA-Public Use
  Company Number: JP-PFIZER INC-2017477222

PATIENT
  Age: 59 Year
  Sex: Male

DRUGS (2)
  1. CARBOPLATIN. [Suspect]
     Active Substance: CARBOPLATIN
     Indication: RENAL CANCER
     Dosage: UNK, (THREE COURSES)
     Dates: start: 201504
  2. IRINOTECAN HCL [Suspect]
     Active Substance: IRINOTECAN HYDROCHLORIDE
     Indication: RENAL CANCER
     Dosage: UNK, (THREE COURSES)
     Dates: start: 201504

REACTIONS (4)
  - Neutropenia [Unknown]
  - Diarrhoea [Unknown]
  - General physical health deterioration [Unknown]
  - Decreased appetite [Unknown]
